FAERS Safety Report 9674600 (Version 1)
Quarter: 2013Q4

REPORT INFORMATION
  Report Type: Spontaneous
  Country: US (occurrence: None)
  Receive Date: 20131106
  Receipt Date: 20131106
  Transmission Date: 20140711
  Serious: Yes (Other)
  Sender: FDA-Public Use
  Company Number: None

PATIENT
  Age: 64 Year
  Sex: Female
  Weight: 107.96 kg

DRUGS (9)
  1. NUCYNTA [Suspect]
     Route: 048
     Dates: start: 20131003, end: 20131004
  2. VITAMIN B COMPLEX [Concomitant]
  3. VITAMIN C [Concomitant]
  4. VITAMIN D [Concomitant]
  5. VITAMIN E [Concomitant]
  6. OSTEO-BI FLEX [Concomitant]
  7. CALCIUM [Concomitant]
  8. FISH OIL [Concomitant]
  9. COQ10 [Concomitant]

REACTIONS (5)
  - Swelling face [None]
  - Local swelling [None]
  - Feeling hot [None]
  - Dyspnoea [None]
  - Pruritus [None]
